FAERS Safety Report 20335625 (Version 1)
Quarter: 2022Q1

REPORT INFORMATION
  Report Type: Spontaneous
  Country: US (occurrence: None)
  Receive Date: 20220114
  Receipt Date: 20220114
  Transmission Date: 20220423
  Serious: No
  Sender: FDA-Public Use
  Company Number: 2021A882542

PATIENT
  Age: 91 Year
  Sex: Male
  Weight: 65.8 kg

DRUGS (1)
  1. PULMICORT FLEXHALER [Suspect]
     Active Substance: BUDESONIDE
     Indication: Cough
     Dosage: 90UG/INHAL TWO TIMES A DAY
     Route: 055
     Dates: start: 20211108

REACTIONS (3)
  - COVID-19 [Recovered/Resolved]
  - Device issue [Unknown]
  - Product use issue [Recovering/Resolving]

NARRATIVE: CASE EVENT DATE: 20211101
